FAERS Safety Report 4929523-3 (Version None)
Quarter: 2006Q1

REPORT INFORMATION
  Report Type: 
  Country: None (occurrence: None)
  Receive Date: 20060224
  Receipt Date: 20060215
  Transmission Date: 20060701
  Serious: Yes (Other)
  Sender: FDA-Public Use
  Company Number: 2006-02-0835

PATIENT
  Age: 63 Year
  Sex: Male

DRUGS (29)
  1. BETAMETHASONE SODIUM PHOSPHATE [Suspect]
     Indication: GASTRIC CANCER
     Dosage: SEE IMAGE
     Route: 042
     Dates: start: 20050826, end: 20050826
  2. BETAMETHASONE SODIUM PHOSPHATE [Suspect]
     Indication: METASTASES TO LIVER
     Dosage: SEE IMAGE
     Route: 042
     Dates: start: 20050826, end: 20050826
  3. BETAMETHASONE SODIUM PHOSPHATE [Suspect]
     Indication: GASTRIC CANCER
     Dosage: SEE IMAGE
     Route: 042
     Dates: start: 20050920, end: 20050920
  4. BETAMETHASONE SODIUM PHOSPHATE [Suspect]
     Indication: METASTASES TO LIVER
     Dosage: SEE IMAGE
     Route: 042
     Dates: start: 20050920, end: 20050920
  5. BETAMETHASONE SODIUM PHOSPHATE [Suspect]
     Indication: GASTRIC CANCER
     Dosage: SEE IMAGE
     Route: 042
     Dates: start: 20050826, end: 20051018
  6. BETAMETHASONE SODIUM PHOSPHATE [Suspect]
     Indication: METASTASES TO LIVER
     Dosage: SEE IMAGE
     Route: 042
     Dates: start: 20050826, end: 20051018
  7. BETAMETHASONE SODIUM PHOSPHATE [Suspect]
     Indication: GASTRIC CANCER
     Dosage: SEE IMAGE
     Route: 042
     Dates: start: 20051018, end: 20051018
  8. BETAMETHASONE SODIUM PHOSPHATE [Suspect]
     Indication: METASTASES TO LIVER
     Dosage: SEE IMAGE
     Route: 042
     Dates: start: 20051018, end: 20051018
  9. RANDA [Suspect]
     Indication: GASTRIC CANCER
     Dosage: SEE IMAGE
     Route: 042
     Dates: start: 20050826, end: 20051018
  10. RANDA [Suspect]
     Indication: METASTASES TO LIVER
     Dosage: SEE IMAGE
     Route: 042
     Dates: start: 20050826, end: 20051018
  11. RANDA [Suspect]
     Indication: GASTRIC CANCER
     Dosage: SEE IMAGE
     Route: 042
     Dates: start: 20050826
  12. RANDA [Suspect]
     Indication: METASTASES TO LIVER
     Dosage: SEE IMAGE
     Route: 042
     Dates: start: 20050826
  13. RANDA [Suspect]
     Indication: GASTRIC CANCER
     Dosage: SEE IMAGE
     Route: 042
     Dates: start: 20050920
  14. RANDA [Suspect]
     Indication: METASTASES TO LIVER
     Dosage: SEE IMAGE
     Route: 042
     Dates: start: 20050920
  15. RANDA [Suspect]
     Indication: GASTRIC CANCER
     Dosage: SEE IMAGE
     Route: 042
     Dates: start: 20051018
  16. RANDA [Suspect]
     Indication: METASTASES TO LIVER
     Dosage: SEE IMAGE
     Route: 042
     Dates: start: 20051018
  17. KYTRIL [Suspect]
     Indication: GASTRIC CANCER
     Dosage: SEE IMAGE
     Route: 042
     Dates: start: 20050826, end: 20051018
  18. KYTRIL [Suspect]
     Indication: METASTASES TO LIVER
     Dosage: SEE IMAGE
     Route: 042
     Dates: start: 20050826, end: 20051018
  19. KYTRIL [Suspect]
     Indication: GASTRIC CANCER
     Dosage: SEE IMAGE
     Route: 042
     Dates: start: 20050826
  20. KYTRIL [Suspect]
     Indication: METASTASES TO LIVER
     Dosage: SEE IMAGE
     Route: 042
     Dates: start: 20050826
  21. KYTRIL [Suspect]
     Indication: GASTRIC CANCER
     Dosage: SEE IMAGE
     Route: 042
     Dates: start: 20050920
  22. KYTRIL [Suspect]
     Indication: METASTASES TO LIVER
     Dosage: SEE IMAGE
     Route: 042
     Dates: start: 20050920
  23. KYTRIL [Suspect]
     Indication: GASTRIC CANCER
     Dosage: SEE IMAGE
     Route: 042
     Dates: start: 20051018
  24. KYTRIL [Suspect]
     Indication: METASTASES TO LIVER
     Dosage: SEE IMAGE
     Route: 042
     Dates: start: 20051018
  25. AMARYL [Concomitant]
  26. AMLODIPINE BESYLATE [Concomitant]
  27. CHEMOTHERAPY REGIMENS [Concomitant]
  28. OMEPRAZOLE [Concomitant]
  29. FUROSEMIDE [Concomitant]

REACTIONS (3)
  - HICCUPS [None]
  - OBSTRUCTION GASTRIC [None]
  - STENT PLACEMENT [None]
